FAERS Safety Report 11218232 (Version 1)
Quarter: 2015Q2

REPORT INFORMATION
  Report Type: Spontaneous
  Country: CA (occurrence: None)
  Receive Date: 20150623
  Receipt Date: 20150623
  Transmission Date: 20150821
  Serious: Yes (Hospitalization)
  Sender: FDA-Public Use
  Company Number: AMAG201400093

PATIENT
  Age: 78 Year
  Sex: Female

DRUGS (10)
  1. ELTROXIN (LEVOTHYROXINE SODIUM) [Concomitant]
     Active Substance: LEVOTHYROXINE
  2. IRBESARTAN (IRBESARTAN) [Concomitant]
     Active Substance: IRBESARTAN
  3. FERAHEME [Suspect]
     Active Substance: FERUMOXYTOL NON-STOICHIOMETRIC MAGNETITE
     Indication: IRON DEFICIENCY ANAEMIA
     Dosage: SINGLE IN 500CC NORMAL SALINE INFUSION
     Dates: start: 20140407, end: 20140407
  4. METFORMIN [Concomitant]
     Active Substance: METFORMIN HYDROCHLORIDE
  5. ACEBUTOLOL (ACEBUTOLOL) [Concomitant]
  6. ASA (ASA) [Concomitant]
  7. JANUVIA [Concomitant]
     Active Substance: SITAGLIPTIN PHOSPHATE
  8. FELODIPINE (FELODIPINE) [Concomitant]
     Active Substance: FELODIPINE
  9. TERAZOSIN (TERAZOSIN HYDROCHLORIDE) [Concomitant]
  10. RANITIDINE [Concomitant]
     Active Substance: RANITIDINE\RANITIDINE HYDROCHLORIDE

REACTIONS (6)
  - Chest pain [None]
  - Flank pain [None]
  - Dyspnoea [None]
  - Blood pressure systolic decreased [None]
  - Pain in extremity [None]
  - Cyanosis [None]

NARRATIVE: CASE EVENT DATE: 20140407
